FAERS Safety Report 18891203 (Version 2)
Quarter: 2021Q1

REPORT INFORMATION
  Report Type: Report from Study
  Country: US (occurrence: US)
  Receive Date: 20210215
  Receipt Date: 20210306
  Transmission Date: 20210420
  Serious: No
  Sender: FDA-Public Use
  Company Number: NVSC2021US026901

PATIENT
  Age: 79 Year
  Sex: Female

DRUGS (1)
  1. ENTRESTO [Suspect]
     Active Substance: SACUBITRIL\VALSARTAN
     Indication: CARDIAC FAILURE
     Dosage: 50 MG, BID, 24/26 MG
     Route: 048
     Dates: start: 202010

REACTIONS (3)
  - Cardiac valve disease [Unknown]
  - Wrong technique in product usage process [Unknown]
  - Hypoacusis [Unknown]

NARRATIVE: CASE EVENT DATE: 202010
